FAERS Safety Report 18444781 (Version 1)
Quarter: 2020Q4

REPORT INFORMATION
  Report Type: Spontaneous
  Country: FR (occurrence: FR)
  Receive Date: 20201030
  Receipt Date: 20201030
  Transmission Date: 20210114
  Serious: Yes (Hospitalization)
  Sender: FDA-Public Use
  Company Number: FR-TEVA-2020-FR-1842467

PATIENT
  Age: 72 Year
  Sex: Female

DRUGS (3)
  1. DIGOXINE NATIVELLE 0,25 MG, COMPRIME [Suspect]
     Active Substance: DIGOXIN
     Indication: ATRIAL FIBRILLATION
     Dosage: 0.13MG
     Route: 048
     Dates: end: 20200921
  2. ATENOLOL ARROW 50 MG, COMPRIME PELLICULE SECABLE [Suspect]
     Active Substance: ATENOLOL
     Indication: HYPERTENSION
     Dosage: 25MG
     Route: 048
     Dates: end: 20200922
  3. METFORMINE ARROW 1000 MG, COMPRIME PELLICULE SECABLE [Suspect]
     Active Substance: METFORMIN HYDROCHLORIDE
     Indication: TYPE 2 DIABETES MELLITUS
     Dosage: 300MG
     Route: 048
     Dates: end: 20200921

REACTIONS (2)
  - Metabolic acidosis [Recovered/Resolved]
  - Bradycardia [Recovering/Resolving]

NARRATIVE: CASE EVENT DATE: 20200915
